FAERS Safety Report 6750226-7 (Version None)
Quarter: 2010Q2

REPORT INFORMATION
  Report Type: 
  Country: None (occurrence: None)
  Receive Date: 20100601
  Receipt Date: 20100521
  Transmission Date: 20101027
  Serious: Yes (Other)
  Sender: FDA-Public Use
  Company Number: MY-PFIZER INC-2010063808

PATIENT
  Age: 51 Year
  Sex: Female

DRUGS (4)
  1. MINIPRESS [Suspect]
     Indication: HYPERTENSION
     Dosage: 6 MG, 1X/DAY
     Route: 048
     Dates: start: 20090622
  2. BUDESONIDE [Concomitant]
  3. TELMISARTAN [Concomitant]
  4. LOVASTATIN [Concomitant]

REACTIONS (3)
  - DIZZINESS [None]
  - GAIT DISTURBANCE [None]
  - PERIORBITAL OEDEMA [None]
